FAERS Safety Report 10905406 (Version 1)
Quarter: 2015Q1

REPORT INFORMATION
  Report Type: Spontaneous
  Country: US (occurrence: None)
  Receive Date: 20150309
  Receipt Date: 20150309
  Transmission Date: 20150721
  Serious: No
  Sender: FDA-Public Use
  Company Number: None

PATIENT
  Age: 32 Year

DRUGS (6)
  1. PRIMROSE EXTRACT. [Concomitant]
     Active Substance: PRIMROSE EXTRACT
  2. VITAMIN D/CALCIUM [Concomitant]
     Active Substance: CALCIUM\VITAMIN D
  3. MSM [Concomitant]
     Active Substance: DIMETHYL SULFONE
  4. INOSITOL [Concomitant]
     Active Substance: INOSITOL
  5. BIOTIN [Concomitant]
     Active Substance: BIOTIN
  6. MIRENA [Suspect]
     Active Substance: LEVONORGESTREL

REACTIONS (6)
  - Anger [None]
  - Acne [None]
  - Emotional disorder [None]
  - Depression [None]
  - Abdominal distension [None]
  - Alopecia [None]

NARRATIVE: CASE EVENT DATE: 20140903
